FAERS Safety Report 9123011 (Version 1)
Quarter: 2013Q1

REPORT INFORMATION
  Report Type: Spontaneous
  Country: FR (occurrence: FR)
  Receive Date: 20130115
  Receipt Date: 20130115
  Transmission Date: 20140127
  Serious: Yes (Life-Threatening, Hospitalization)
  Sender: FDA-Public Use
  Company Number: FR-GENZYME-FABR-1002957

PATIENT
  Age: 69 Year
  Sex: Male

DRUGS (1)
  1. FABRAZYME [Suspect]
     Indication: FABRY^S DISEASE
     Dosage: UNK
     Route: 042
     Dates: start: 201208

REACTIONS (2)
  - Ventricular arrhythmia [Not Recovered/Not Resolved]
  - Cardiogenic shock [Not Recovered/Not Resolved]
